FAERS Safety Report 4532541-0 (Version None)
Quarter: 2004Q4

REPORT INFORMATION
  Report Type: 
  Country: None (occurrence: None)
  Receive Date: 20041206
  Receipt Date: 20040809
  Transmission Date: 20050328
  Serious: No
  Sender: FDA-Public Use
  Company Number: USA040874806

PATIENT
  Age: 67 Year
  Sex: Female
  Weight: 71 kg

DRUGS (8)
  1. ALIMTA [Suspect]
     Indication: LUNG NEOPLASM MALIGNANT
     Dosage: 850 MG OTHER
  2. ALIMTA [Suspect]
     Indication: PLEURAL DISORDER
     Dosage: 850 MG OTHER
  3. CISPLATIN [Concomitant]
  4. FOLIC ACID [Concomitant]
  5. VITAMIN B-12 [Concomitant]
  6. TAXOTERE [Concomitant]
  7. ETOPOSIDE [Concomitant]
  8. IRESSA [Concomitant]

REACTIONS (4)
  - HEADACHE [None]
  - KERATOCONJUNCTIVITIS SICCA [None]
  - NAUSEA [None]
  - VOMITING [None]
